FAERS Safety Report 13070734 (Version 2)
Quarter: 2017Q1

REPORT INFORMATION
  Report Type: Report from Study
  Country: RO (occurrence: RO)
  Receive Date: 20161229
  Receipt Date: 20170306
  Transmission Date: 20170428
  Serious: Yes (Other)
  Sender: FDA-Public Use
  Company Number: RO-ROCHE-1871011

PATIENT

DRUGS (5)
  1. DASABUVIR [Suspect]
     Active Substance: DASABUVIR
     Indication: HEPATIC CIRRHOSIS
     Route: 065
  2. OMBITASVIR/PARITAPREVIR/RITONAVIR [Suspect]
     Active Substance: OMBITASVIR\PARITAPREVIR\RITONAVIR
     Indication: HEPATITIS C
  3. OMBITASVIR/PARITAPREVIR/RITONAVIR [Suspect]
     Active Substance: OMBITASVIR\PARITAPREVIR\RITONAVIR
     Indication: HEPATIC CIRRHOSIS
     Route: 065
  4. DASABUVIR [Suspect]
     Active Substance: DASABUVIR
     Indication: HEPATITIS C
  5. RIBAVIRIN. [Suspect]
     Active Substance: RIBAVIRIN
     Indication: HEPATIC CIRRHOSIS
     Route: 065

REACTIONS (13)
  - Intestinal obstruction [Unknown]
  - Depression [Unknown]
  - Bleeding varicose vein [Unknown]
  - Anaemia [Unknown]
  - Ascites [Unknown]
  - Encephalopathy [Unknown]
  - Hepatic encephalopathy [Unknown]
  - Cardiac failure [Unknown]
  - Asthenia [Unknown]
  - Insomnia [Unknown]
  - Pruritus [Unknown]
  - Jaundice [Unknown]
  - Headache [Unknown]
